FAERS Safety Report 6120253-1 (Version None)
Quarter: 2009Q1

REPORT INFORMATION
  Report Type: 
  Country: None (occurrence: None)
  Receive Date: 20090312
  Receipt Date: 20090304
  Transmission Date: 20090719
  Serious: Yes (Other)
  Sender: FDA-Public Use
  Company Number: CHPA2009US05789

PATIENT
  Sex: Female

DRUGS (1)
  1. THERAFLU NIGHTTIME SEVERE COLD + COUGH (NCH)(PARACETAMOL, DIPHENHYDRAM [Suspect]
     Indication: INFLUENZA
     Dosage: 1 DF, ONCE/SINGLE, ORAL
     Route: 048
     Dates: start: 20090304, end: 20090304

REACTIONS (1)
  - HALLUCINATION [None]
